FAERS Safety Report 9110643 (Version 2)
Quarter: 2014Q1

REPORT INFORMATION
  Report Type: Spontaneous
  Country: US (occurrence: US)
  Receive Date: 20130219
  Receipt Date: 20140213
  Transmission Date: 20141002
  Serious: Yes (Other)
  Sender: FDA-Public Use
  Company Number: US-BRISTOL-MYERS SQUIBB COMPANY-16710964

PATIENT
  Age: 68 Year
  Sex: Female
  Weight: 52.15 kg

DRUGS (4)
  1. ORENCIA [Suspect]
     Indication: RHEUMATOID ARTHRITIS
     Dosage: NO OF INF :3
     Route: 042
     Dates: start: 20120521, end: 201301
  2. IMURAN [Concomitant]
     Dates: start: 2008, end: 201211
  3. PLAQUENIL [Concomitant]
     Dates: start: 20121127
  4. PREDNISONE [Concomitant]

REACTIONS (4)
  - B-cell lymphoma [Unknown]
  - Feeling of body temperature change [Recovering/Resolving]
  - Anaemia [Unknown]
  - Paraesthesia [Unknown]
